FAERS Safety Report 6174987-3 (Version None)
Quarter: 2009Q2

REPORT INFORMATION
  Report Type: 
  Country: None (occurrence: None)
  Receive Date: 20090430
  Receipt Date: 20081107
  Transmission Date: 20091009
  Serious: No
  Sender: FDA-Public Use
  Company Number: US-ASTRAZENECA-2008UW24973

PATIENT
  Age: 75 Year
  Sex: Female

DRUGS (5)
  1. NEXIUM [Suspect]
     Indication: HIATUS HERNIA
     Route: 048
  2. VITAMIN D [Concomitant]
  3. OTC ACIDOPHALUS [Concomitant]
  4. NASAL SPRAY UNKNOWN [Concomitant]
  5. THYROID MEDICATION [Concomitant]

REACTIONS (4)
  - CONSTIPATION [None]
  - DIARRHOEA [None]
  - DRY MOUTH [None]
  - RENAL DISORDER [None]
